FAERS Safety Report 21018228 (Version 1)
Quarter: 2022Q2

REPORT INFORMATION
  Report Type: Spontaneous
  Country: US (occurrence: None)
  Receive Date: 20220627
  Receipt Date: 20220627
  Transmission Date: 20220721
  Serious: Yes (Hospitalization)
  Sender: FDA-Public Use
  Company Number: None

PATIENT
  Age: 37 Year
  Sex: Female

DRUGS (3)
  1. HUMIRA [Suspect]
     Active Substance: ADALIMUMAB
  2. BACLOFEN [Concomitant]
  3. BOTOX [Concomitant]

REACTIONS (2)
  - Endometriosis [None]
  - Therapy interrupted [None]

NARRATIVE: CASE EVENT DATE: 20220620
